FAERS Safety Report 20677849 (Version 1)
Quarter: 2022Q2

REPORT INFORMATION
  Report Type: Spontaneous
  Country: FR (occurrence: FR)
  Receive Date: 20220406
  Receipt Date: 20220406
  Transmission Date: 20220720
  Serious: Yes (Hospitalization)
  Sender: FDA-Public Use
  Company Number: FR-AFSSAPS-LL20221115

PATIENT
  Age: 91 Year
  Sex: Female
  Weight: 44 kg

DRUGS (7)
  1. AMOXICILLIN [Suspect]
     Active Substance: AMOXICILLIN
     Indication: Product used for unknown indication
     Dosage: 500 MILLIGRAM (10D)
     Route: 065
     Dates: start: 20220222
  2. METRONIDAZOLE [Suspect]
     Active Substance: METRONIDAZOLE
     Indication: Product used for unknown indication
     Dosage: UNK
     Route: 065
     Dates: start: 20220225
  3. OFLOXACIN [Suspect]
     Active Substance: OFLOXACIN
     Indication: Prophylaxis
     Dosage: UNK
     Route: 065
  4. CEFOTAXIME SODIUM [Suspect]
     Active Substance: CEFOTAXIME SODIUM
     Indication: Product used for unknown indication
     Dosage: UNK
     Route: 065
     Dates: start: 20220225
  5. HEPARIN CALCIUM [Suspect]
     Active Substance: HEPARIN CALCIUM
     Indication: Prophylaxis
     Dosage: 5000 INTERNATIONAL UNIT (2500 IU, BID)
     Route: 065
     Dates: start: 20220222, end: 20220225
  6. KARDEGIC [Suspect]
     Active Substance: ASPIRIN DL-LYSINE
     Indication: Prophylaxis
     Dosage: 1 DOSAGE FORM (1 DF 1 SACHET MORNING)
     Route: 048
     Dates: start: 20220222, end: 20220301
  7. LOVENOX [Suspect]
     Active Substance: ENOXAPARIN SODIUM
     Indication: Prophylaxis
     Dosage: 4000 INTERNATIONAL UNIT, ONCE A DAY (4000 IU/0.4ML)
     Route: 058
     Dates: start: 20220222, end: 20220301

REACTIONS (2)
  - Anaemia [Not Recovered/Not Resolved]
  - Pelvic haematoma [Not Recovered/Not Resolved]

NARRATIVE: CASE EVENT DATE: 20220228
